FAERS Safety Report 13434983 (Version 1)
Quarter: 2017Q2

REPORT INFORMATION
  Report Type: Spontaneous
  Country: US (occurrence: US)
  Receive Date: 20170413
  Receipt Date: 20170413
  Transmission Date: 20170830
  Serious: No
  Sender: FDA-Public Use
  Company Number: US-SHIRE-US201707132

PATIENT
  Sex: Male

DRUGS (1)
  1. KALBITOR [Suspect]
     Active Substance: ECALLANTIDE
     Indication: ACCIDENTAL EXPOSURE TO PRODUCT
     Dosage: 30 MG, AS REQ^D
     Route: 058
     Dates: start: 201703, end: 201703

REACTIONS (1)
  - Wrong patient received medication [Unknown]

NARRATIVE: CASE EVENT DATE: 201703
